FAERS Safety Report 7824895-4 (Version None)
Quarter: 2011Q4

REPORT INFORMATION
  Report Type: 
  Country: None (occurrence: None)
  Receive Date: 20111019
  Receipt Date: 20110217
  Transmission Date: 20120403
  Serious: No
  Sender: FDA-Public Use
  Company Number: US-BRISTOL-MYERS SQUIBB COMPANY-15556749

PATIENT
  Age: 59 Year
  Sex: Male

DRUGS (1)
  1. AVALIDE [Suspect]
     Indication: HYPERTENSION
     Dosage: AVALIDE 300/12.5MG 1DF:HALF TABLET
     Dates: start: 20070101

REACTIONS (1)
  - MEDICATION ERROR [None]
